FAERS Safety Report 7900725-7 (Version None)
Quarter: 2011Q4

REPORT INFORMATION
  Report Type: 
  Country: None (occurrence: None)
  Receive Date: 20111108
  Receipt Date: 20111025
  Transmission Date: 20120403
  Serious: Yes (Death, Other)
  Sender: FDA-Public Use
  Company Number: US-ELI_LILLY_AND_COMPANY-US201110001219

PATIENT
  Sex: Female
  Weight: 76.6 kg

DRUGS (4)
  1. TYLENOL                                 /SCH/ [Concomitant]
  2. VITAMIN D [Concomitant]
     Dosage: 2000 IU, QD
  3. FORTEO [Suspect]
     Dosage: 20 UG, QD
     Route: 058
  4. ULTRAM [Concomitant]

REACTIONS (4)
  - PNEUMONIA [None]
  - MYASTHENIA GRAVIS [None]
  - DIABETES MELLITUS [None]
  - GASTROINTESTINAL PERFORATION [None]
